FAERS Safety Report 9496693 (Version 1)
Quarter: 2013Q3

REPORT INFORMATION
  Report Type: Spontaneous
  Country: US (occurrence: US)
  Receive Date: 20130904
  Receipt Date: 20130904
  Transmission Date: 20140515
  Serious: No
  Sender: FDA-Public Use
  Company Number: US-009507513-1308USA014800

PATIENT
  Sex: Male

DRUGS (4)
  1. REBETOL [Suspect]
     Indication: HEPATITIS C
     Dosage: UNK
     Dates: start: 20060804
  2. REBETOL [Suspect]
     Dosage: UNK
     Dates: end: 20070706
  3. PEGASYS [Suspect]
     Indication: HEPATITIS C
     Dosage: UNK
     Dates: start: 20060804
  4. PEGASYS [Suspect]
     Dosage: UNK
     Dates: end: 20070706

REACTIONS (3)
  - Blood cholesterol abnormal [Unknown]
  - Hepatitis C [Unknown]
  - Full blood count decreased [Unknown]
